FAERS Safety Report 12917241 (Version 1)
Quarter: 2016Q4

REPORT INFORMATION
  Report Type: Spontaneous
  Country: US (occurrence: US)
  Receive Date: 20161107
  Receipt Date: 20161107
  Transmission Date: 20170207
  Serious: No
  Sender: FDA-Public Use
  Company Number: US-JAZZ-2016-US-017568

PATIENT
  Sex: Female

DRUGS (30)
  1. XYREM [Suspect]
     Active Substance: SODIUM OXYBATE
     Dosage: 3 G, BID
     Route: 048
     Dates: start: 201609
  2. ATROVENT HFA [Concomitant]
     Active Substance: IPRATROPIUM BROMIDE
  3. MELATONIN [Concomitant]
     Active Substance: MELATONIN
  4. XYREM [Suspect]
     Active Substance: SODIUM OXYBATE
     Indication: INSOMNIA
     Dosage: 2.25 G, BID
     Route: 048
     Dates: start: 201608, end: 201609
  5. NUVIGIL [Concomitant]
     Active Substance: ARMODAFINIL
  6. ASPIRIN. [Concomitant]
     Active Substance: ASPIRIN
  7. SINGULAIR [Concomitant]
     Active Substance: MONTELUKAST SODIUM
  8. XANAX [Concomitant]
     Active Substance: ALPRAZOLAM
  9. THYROSOL [Concomitant]
  10. ARMOUR THYROID [Concomitant]
     Active Substance: THYROID, PORCINE
  11. ESTROGEN/METHYLTES [Concomitant]
     Active Substance: ESTROGENS\METHYLTESTOSTERONE
  12. MAGNESIUM OXIDE. [Concomitant]
     Active Substance: MAGNESIUM OXIDE
  13. TRIPLE OMEGA COMPLEX 3-6-9 [Concomitant]
  14. CYCLOBENZAPRINE [Concomitant]
     Active Substance: CYCLOBENZAPRINE
  15. LUNESTA [Concomitant]
     Active Substance: ESZOPICLONE
  16. FIORICET [Concomitant]
     Active Substance: ACETAMINOPHEN\BUTALBITAL\CAFFEINE
  17. NAPROXEN. [Concomitant]
     Active Substance: NAPROXEN
  18. VITAMIN C [Concomitant]
     Active Substance: ASCORBIC ACID
  19. DIPHENHYDRAMINE. [Concomitant]
     Active Substance: DIPHENHYDRAMINE
  20. COLACE [Concomitant]
     Active Substance: DOCUSATE SODIUM
  21. IRON [Concomitant]
     Active Substance: IRON
  22. VITAMIN E [Concomitant]
     Active Substance: .ALPHA.-TOCOPHEROL
  23. MEPERIDINE [Concomitant]
     Active Substance: MEPERIDINE
  24. PROVENTIL HFA [Concomitant]
     Active Substance: ALBUTEROL SULFATE
  25. IODINE. [Concomitant]
     Active Substance: IODINE
  26. CYMBALTA [Concomitant]
     Active Substance: DULOXETINE HYDROCHLORIDE
  27. XYZAL [Concomitant]
     Active Substance: LEVOCETIRIZINE DIHYDROCHLORIDE
  28. VITAMIN D3 [Concomitant]
     Active Substance: CHOLECALCIFEROL
  29. METAXALONE. [Concomitant]
     Active Substance: METAXALONE
  30. TRAMADOL HCL [Concomitant]
     Active Substance: TRAMADOL HYDROCHLORIDE

REACTIONS (2)
  - Pre-existing condition improved [Unknown]
  - Therapeutic response unexpected [Unknown]
